FAERS Safety Report 23777063 (Version 1)
Quarter: 2024Q2

REPORT INFORMATION
  Report Type: Spontaneous
  Country: CO (occurrence: CO)
  Receive Date: 20240424
  Receipt Date: 20240424
  Transmission Date: 20240716
  Serious: Yes (Death, Other)
  Sender: FDA-Public Use
  Company Number: CO-VANTIVE-2024BAX015333

PATIENT
  Sex: Female

DRUGS (1)
  1. DIANEAL PD-2 WITH DEXTROSE [Suspect]
     Active Substance: CALCIUM CHLORIDE\DEXTROSE\MAGNESIUM CHLORIDE\SODIUM CHLORIDE\SODIUM LACTATE
     Indication: Peritoneal dialysis
     Dosage: 4 BAGS OF 2 LITERS PER DAY
     Route: 033
     Dates: start: 20240112

REACTIONS (2)
  - Ischaemic stroke [Fatal]
  - Syncope [Fatal]

NARRATIVE: CASE EVENT DATE: 20240318
